FAERS Safety Report 5939674-2 (Version None)
Quarter: 2008Q4

REPORT INFORMATION
  Report Type: 
  Country: None (occurrence: None)
  Receive Date: 20081030
  Receipt Date: 20081030
  Transmission Date: 20090506
  Serious: Yes (Other)
  Sender: FDA-Public Use
  Company Number: None

PATIENT
  Age: 53 Year
  Sex: Male
  Weight: 77.1115 kg

DRUGS (16)
  1. CARBOPLATIN [Suspect]
  2. PACLITAXEL [Suspect]
  3. ALBUTEROL (PROVENTIL HFA) [Concomitant]
  4. ALPRAZOLAM [Concomitant]
  5. DILTIAZEM HCL (DILTIA XT) [Concomitant]
  6. IPRATROPIUM-ALBUTEROL (DUONEB) [Concomitant]
  7. PREVACID [Concomitant]
  8. LEVOTHYROXINE SODIUM [Concomitant]
  9. METOPROLOL SUCCINATE [Concomitant]
  10. ONDANSETRON HCL [Concomitant]
  11. OXYCODONE HCL [Concomitant]
  12. OXYCONTIN [Concomitant]
  13. OXYGEN-AIR DELIVERY SYSTEMS (HORIZON NASAL CPAP SYSTEM) [Concomitant]
  14. PREDNISONE TAB [Concomitant]
  15. PROCHLORPERAZINE MALEATE [Concomitant]
  16. SPIRONOLACTONE [Concomitant]

REACTIONS (1)
  - PLATELET COUNT DECREASED [None]
